FAERS Safety Report 4318247-1 (Version None)
Quarter: 2004Q1

REPORT INFORMATION
  Report Type: 
  Country: None (occurrence: None)
  Receive Date: 20040317
  Receipt Date: 20040119
  Transmission Date: 20041129
  Serious: Yes (Hospitalization)
  Sender: FDA-Public Use
  Company Number: US-BRISTOL-MYERS SQUIBB COMPANY-12481792

PATIENT
  Age: 56 Year
  Sex: Female

DRUGS (2)
  1. CETUXIMAB [Suspect]
     Indication: COLORECTAL CANCER
     Route: 042
     Dates: start: 20031106, end: 20031106
  2. COUMADIN [Suspect]
     Dates: start: 20031002

REACTIONS (4)
  - ABDOMINAL HAEMATOMA [None]
  - ACTIVATED PARTIAL THROMBOPLASTIN TIME PROLONGED [None]
  - HYPOVOLAEMIA [None]
  - INTRA-ABDOMINAL HAEMORRHAGE [None]
